FAERS Safety Report 6414554-7 (Version None)
Quarter: 2009Q4

REPORT INFORMATION
  Report Type: 
  Country: None (occurrence: None)
  Receive Date: 20091026
  Receipt Date: 20091013
  Transmission Date: 20100525
  Serious: Yes (Hospitalization)
  Sender: FDA-Public Use
  Company Number: GB-ELI_LILLY_AND_COMPANY-GB200910003061

PATIENT
  Age: 35 Year
  Sex: Male

DRUGS (9)
  1. OLANZAPINE [Suspect]
     Dosage: UNK, UNKNOWN
     Route: 065
     Dates: end: 20080721
  2. CLOZARIL [Concomitant]
     Indication: SCHIZOPHRENIA
     Dosage: UNK, UNKNOWN
     Route: 048
     Dates: start: 20080714, end: 20080721
  3. FLUOXETINE [Concomitant]
     Dosage: UNK, UNKNOWN
     Route: 048
     Dates: end: 20080721
  4. HYOSCINE [Concomitant]
     Dosage: UNK, UNKNOWN
     Route: 065
     Dates: end: 20080721
  5. LANSOPRAZOLE [Concomitant]
     Dosage: UNK, UNKNOWN
     Route: 048
     Dates: end: 20080721
  6. PROCYCLIDINE HYDROCHLORIDE 2MG TAB [Concomitant]
     Dosage: UNK, UNKNOWN
     Route: 048
     Dates: end: 20080721
  7. RISPERIDONE [Concomitant]
     Dosage: UNK, UNKNOWN
     Route: 048
     Dates: end: 20080721
  8. SIMVASTATIN [Concomitant]
     Dosage: UNK, UNKNOWN
     Route: 048
     Dates: end: 20080721
  9. VALPROATE SODIUM [Concomitant]
     Dosage: UNK, UNKNOWN
     Route: 048
     Dates: end: 20080721

REACTIONS (9)
  - COMPUTERISED TOMOGRAM ABDOMEN ABNORMAL [None]
  - DRUG HYPERSENSITIVITY [None]
  - DYSPEPSIA [None]
  - GASTRIC VOLVULUS [None]
  - GASTRITIS [None]
  - GASTROINTESTINAL HAEMORRHAGE [None]
  - HIATUS HERNIA [None]
  - MALAISE [None]
  - VOMITING [None]
